FAERS Safety Report 17484725 (Version 2)
Quarter: 2020Q2

REPORT INFORMATION
  Report Type: Spontaneous
  Country: US (occurrence: US)
  Receive Date: 20200302
  Receipt Date: 20200526
  Transmission Date: 20200713
  Serious: Yes (Other)
  Sender: FDA-Public Use
  Company Number: US-BAYER-2020-033918

PATIENT
  Age: 28 Year
  Sex: Male

DRUGS (1)
  1. KOGENATE FS [Suspect]
     Active Substance: ANTIHEMOPHILIC FACTOR, HUMAN RECOMBINANT
     Indication: FACTOR VIII DEFICIENCY
     Dosage: 2500 TO 5000 IU, AS DIRECTED
     Route: 042
     Dates: start: 200711

REACTIONS (3)
  - Haemorrhage [None]
  - Contusion [None]
  - Fall [None]

NARRATIVE: CASE EVENT DATE: 201907
